FAERS Safety Report 22289974 (Version 1)
Quarter: 2023Q2

REPORT INFORMATION
  Report Type: Spontaneous
  Country: US (occurrence: None)
  Receive Date: 20230504
  Receipt Date: 20230504
  Transmission Date: 20230722
  Serious: Yes (Hospitalization, Other)
  Sender: FDA-Public Use
  Company Number: None

PATIENT
  Age: 36 Year
  Sex: Female
  Weight: 69.3 kg

DRUGS (4)
  1. DEXTROAMPHET SACCHARAT, AMPHET ASPARTATE, DEXTROAMPHET SULFATE AND AMP [Suspect]
     Active Substance: AMPHETAMINE ASPARTATE\AMPHETAMINE ASPARTATE MONOHYDRATE\AMPHETAMINE SULFATE\DEXTROAMPHETAMINE SACCHA
     Indication: Attention deficit hyperactivity disorder
     Dosage: FREQUENCY : DAILY;?
     Route: 048
  2. MORPHINE [Concomitant]
     Active Substance: MORPHINE
  3. DEMEROL [Concomitant]
     Active Substance: MEPERIDINE HYDROCHLORIDE
  4. REGLAN [Concomitant]
     Active Substance: METOCLOPRAMIDE HYDROCHLORIDE

REACTIONS (14)
  - Adverse drug reaction [None]
  - Tremor [None]
  - Dizziness [None]
  - Heart rate increased [None]
  - Headache [None]
  - Nausea [None]
  - Confusional state [None]
  - Anxiety [None]
  - Paranoia [None]
  - Feeling of body temperature change [None]
  - Hyperhidrosis [None]
  - Chest pain [None]
  - Dysstasia [None]
  - Impaired driving ability [None]

NARRATIVE: CASE EVENT DATE: 20230504
